FAERS Safety Report 9550312 (Version 2)
Quarter: 2014Q2

REPORT INFORMATION
  Report Type: Spontaneous
  Country: US (occurrence: US)
  Receive Date: 20130924
  Receipt Date: 20140402
  Transmission Date: 20141212
  Serious: No
  Sender: FDA-Public Use
  Company Number: US-SANOFI-AVENTIS-2013SA085245

PATIENT
  Sex: Male
  Weight: 122 kg

DRUGS (4)
  1. AUBAGIO [Suspect]
     Route: 048
     Dates: start: 201304
  2. LYRICA [Concomitant]
     Route: 065
  3. VITAMIN B12 [Concomitant]
     Dosage: DOSE- 1000 CR
     Route: 065
  4. VITAMIN D [Concomitant]
     Dosage: DOSE:1000 UNIT(S)
     Route: 065

REACTIONS (3)
  - Diarrhoea [Recovering/Resolving]
  - Pruritus [Not Recovered/Not Resolved]
  - Drug hypersensitivity [Unknown]
